FAERS Safety Report 8111156-1 (Version None)
Quarter: 2012Q1

REPORT INFORMATION
  Report Type: 
  Country: None (occurrence: None)
  Receive Date: 20120203
  Receipt Date: 20110520
  Transmission Date: 20120608
  Serious: No
  Sender: FDA-Public Use
  Company Number: US-GLAXOSMITHKLINE-A0928347A

PATIENT
  Age: 15 Year
  Sex: Male

DRUGS (6)
  1. LITHIUM CARBONATE [Concomitant]
  2. LAMOTRIGINE [Suspect]
     Indication: BIPOLAR DISORDER
     Dosage: 50MG PER DAY
     Route: 048
     Dates: start: 20110412, end: 20110423
  3. HALDOL [Concomitant]
  4. DEPLIN [Concomitant]
  5. DEPAKOTE [Concomitant]
  6. KLONOPIN [Concomitant]

REACTIONS (1)
  - CONTUSION [None]
